FAERS Safety Report 7475730-8 (Version None)
Quarter: 2011Q2

REPORT INFORMATION
  Report Type: 
  Country: None (occurrence: None)
  Receive Date: 20110510
  Receipt Date: 20110510
  Transmission Date: 20111010
  Serious: Yes (Other)
  Sender: FDA-Public Use
  Company Number: None

PATIENT
  Age: 82 Year
  Sex: Female
  Weight: 83.4619 kg

DRUGS (2)
  1. SPIRONOLACTONE AND HYDROCHLOROTHIAZIDE [Suspect]
     Dosage: 25-25 BID
  2. ZYLOPRIM [Suspect]
     Dosage: 300 Q HS

REACTIONS (4)
  - OEDEMA PERIPHERAL [None]
  - DIZZINESS [None]
  - VISUAL IMPAIRMENT [None]
  - NAUSEA [None]
